FAERS Safety Report 4810713-5 (Version None)
Quarter: 2005Q4

REPORT INFORMATION
  Report Type: 
  Country: None (occurrence: None)
  Receive Date: 20051026
  Receipt Date: 20051013
  Transmission Date: 20060501
  Serious: Yes (Other)
  Sender: FDA-Public Use
  Company Number: IT-MERCK-0510ITA00025

PATIENT
  Age: 19 Year
  Sex: Male

DRUGS (1)
  1. PRIMAXIN [Suspect]
     Indication: BRONCHOPNEUMONIA
     Route: 051

REACTIONS (1)
  - LAFORA'S MYOCLONIC EPILEPSY [None]
